FAERS Safety Report 7141023-1 (Version None)
Quarter: 2010Q4

REPORT INFORMATION
  Report Type: 
  Country: None (occurrence: None)
  Receive Date: 20101122
  Receipt Date: 20101027
  Transmission Date: 20110411
  Serious: Yes (Hospitalization)
  Sender: FDA-Public Use
  Company Number: GB-021373

PATIENT
  Age: 82 Year
  Sex: Male

DRUGS (7)
  1. (CHLORAMBUCIL) [Suspect]
     Indication: CHRONIC LYMPHOCYTIC LEUKAEMIA
     Dosage: 10 MG/M2 DAYS 1-7 EVERY 28 DAYS ORAL
     Route: 048
     Dates: start: 20100924
  2. (OFATUMUMAB) [Suspect]
     Indication: CHRONIC LYMPHOCYTIC LEUKAEMIA
     Dosage: INJECTION 300MG AT DAY 1, 1000MG AT DAY 8 FOLLOWED BY 1000MG EVERY 28 DAYS INTRAVENOUS
     Route: 042
     Dates: start: 20100923
  3. FUROSEMIDE [Concomitant]
  4. AMLODIPINE [Concomitant]
  5. (BISOPROLOL) [Concomitant]
  6. SIMVASTATIN [Concomitant]
  7. (ACETYLSALICYLIC ACID) [Concomitant]

REACTIONS (4)
  - DIZZINESS [None]
  - HEADACHE [None]
  - PHOTOPSIA [None]
  - TREMOR [None]
